FAERS Safety Report 9828437 (Version 2)
Quarter: 2014Q1

REPORT INFORMATION
  Report Type: Spontaneous
  Country: AT (occurrence: AT)
  Receive Date: 20140117
  Receipt Date: 20140325
  Transmission Date: 20141002
  Serious: Yes (Death)
  Sender: FDA-Public Use
  Company Number: AT-CELGENEUS-009-21880-14011472

PATIENT
  Sex: 0

DRUGS (3)
  1. REVLIMID [Suspect]
     Indication: AMYLOIDOSIS
     Dosage: 5-15
     Route: 048
  2. BENDAMUSTINE [Concomitant]
     Indication: AMYLOIDOSIS
     Dosage: 40-70
     Route: 041
  3. DEXAMETHASONE [Concomitant]
     Indication: AMYLOIDOSIS
     Route: 041

REACTIONS (1)
  - Infection [Fatal]
